FAERS Safety Report 7198155-1 (Version None)
Quarter: 2010Q4

REPORT INFORMATION
  Report Type: 
  Country: None (occurrence: None)
  Receive Date: 20101227
  Receipt Date: 20101213
  Transmission Date: 20110411
  Serious: Yes (Other)
  Sender: FDA-Public Use
  Company Number: PHFR2010GB05857

PATIENT
  Sex: Male

DRUGS (5)
  1. CLOZARIL [Suspect]
     Indication: PSYCHOTIC DISORDER
     Dosage: 400 MG, QD
     Route: 048
     Dates: start: 20091005
  2. CLOZARIL [Suspect]
     Dosage: 300 MG, QD
     Route: 048
  3. CLOZARIL [Suspect]
     Dosage: 375 MG, QD
     Route: 048
  4. CLOZARIL [Suspect]
     Dosage: 400 MG, QD
     Route: 048
  5. FLUOXETINE [Concomitant]
     Indication: OBSESSIVE THOUGHTS
     Dosage: 40 MG, QD
     Route: 048
     Dates: start: 20050622

REACTIONS (2)
  - ANTIPSYCHOTIC DRUG LEVEL BELOW THERAPEUTIC [None]
  - FALL [None]
